FAERS Safety Report 23292226 (Version 2)
Quarter: 2024Q2

REPORT INFORMATION
  Report Type: Spontaneous
  Country: US (occurrence: US)
  Receive Date: 20231213
  Receipt Date: 20240415
  Transmission Date: 20240715
  Serious: No
  Sender: FDA-Public Use
  Company Number: US-AstraZeneca-CH-00525163A

PATIENT
  Sex: Female

DRUGS (1)
  1. ASFOTASE ALFA [Suspect]
     Active Substance: ASFOTASE ALFA
     Indication: Hypophosphatasia
     Dosage: UNK, TIW
     Route: 059
     Dates: start: 202303

REACTIONS (4)
  - Anxiety [Unknown]
  - Arthralgia [Not Recovered/Not Resolved]
  - Injection site bruising [Unknown]
  - Injection site pain [Unknown]
